FAERS Safety Report 6162940-5 (Version None)
Quarter: 2009Q2

REPORT INFORMATION
  Report Type: 
  Country: None (occurrence: None)
  Receive Date: 20090420
  Receipt Date: 20090413
  Transmission Date: 20091009
  Serious: Yes (Hospitalization)
  Sender: FDA-Public Use
  Company Number: SPV1-2009-00692

PATIENT
  Age: 10 Year
  Sex: Male
  Weight: 39.9 kg

DRUGS (1)
  1. VYVANSE [Suspect]
     Indication: ATTENTION DEFICIT/HYPERACTIVITY DISORDER
     Dosage: 20 MG, 1X/DAY:QD, ORAL
     Route: 048
     Dates: start: 20080101, end: 20080101

REACTIONS (6)
  - ANOREXIA [None]
  - BLOOD GLUCOSE ABNORMAL [None]
  - DEHYDRATION [None]
  - INSOMNIA [None]
  - IRRITABILITY [None]
  - WEIGHT DECREASED [None]
